FAERS Safety Report 24862503 (Version 1)
Quarter: 2025Q1

REPORT INFORMATION
  Report Type: Spontaneous
  Country: CN (occurrence: CN)
  Receive Date: 20250120
  Receipt Date: 20250120
  Transmission Date: 20250409
  Serious: Yes (Hospitalization)
  Sender: PFIZER
  Company Number: CN-PFIZER INC-PV202500006640

PATIENT
  Age: 13 Year
  Sex: Male
  Weight: 63 kg

DRUGS (2)
  1. METHOTREXATE SODIUM [Suspect]
     Active Substance: METHOTREXATE SODIUM
     Indication: Acute lymphocytic leukaemia
     Dosage: 0.85 G, 1X/DAY
     Route: 041
     Dates: start: 20250103, end: 20250103
  2. METHOTREXATE SODIUM [Suspect]
     Active Substance: METHOTREXATE SODIUM
     Dosage: 7.72 G, 1X/DAY
     Route: 041
     Dates: start: 20250103, end: 20250103

REACTIONS (6)
  - Oral pain [Not Recovered/Not Resolved]
  - Drug eruption [Recovering/Resolving]
  - Pharyngeal erythema [Recovering/Resolving]
  - Pharyngeal disorder [Recovering/Resolving]
  - Mucosal erosion [Recovering/Resolving]
  - Laryngeal pain [Not Recovered/Not Resolved]

NARRATIVE: CASE EVENT DATE: 20250101
